FAERS Safety Report 19511925 (Version 4)
Quarter: 2021Q3

REPORT INFORMATION
  Report Type: Spontaneous
  Country: US (occurrence: US)
  Receive Date: 20210709
  Receipt Date: 20210830
  Transmission Date: 20211014
  Serious: Yes (Death, Other)
  Sender: FDA-Public Use
  Company Number: US-SA-2021SA223243

PATIENT
  Age: 76 Year
  Sex: Male

DRUGS (1)
  1. ZANTAC [Suspect]
     Active Substance: RANITIDINE HYDROCHLORIDE
     Indication: DYSPEPSIA
     Dosage: 150 MG
     Dates: start: 2013, end: 2020

REACTIONS (6)
  - Radical cystectomy [Unknown]
  - Gastric ulcer perforation [Fatal]
  - Bladder cancer [Unknown]
  - Cardiac arrest [Fatal]
  - Neoplasm malignant [Unknown]
  - Explorative laparotomy [Unknown]

NARRATIVE: CASE EVENT DATE: 20190801
